FAERS Safety Report 8074760-5 (Version None)
Quarter: 2012Q1

REPORT INFORMATION
  Report Type: 
  Country: None (occurrence: None)
  Receive Date: 20120126
  Receipt Date: 20120119
  Transmission Date: 20120608
  Serious: Yes (Other)
  Sender: FDA-Public Use
  Company Number: CA-ROCHE-743106

PATIENT
  Sex: Female
  Weight: 45.4 kg

DRUGS (5)
  1. ACTEMRA [Suspect]
     Indication: RHEUMATOID ARTHRITIS
     Route: 042
  2. ACTEMRA [Suspect]
     Route: 042
  3. VIMOVO [Concomitant]
  4. ACTEMRA [Suspect]
     Dosage: FORM: INFUSION
     Route: 042
  5. CORTISONE ACETATE [Concomitant]

REACTIONS (10)
  - MUSCULOSKELETAL PAIN [None]
  - PRURITUS [None]
  - ROAD TRAFFIC ACCIDENT [None]
  - ARTHRALGIA [None]
  - NASOPHARYNGITIS [None]
  - DIARRHOEA [None]
  - MIGRAINE [None]
  - CONCUSSION [None]
  - DIZZINESS [None]
  - COLITIS [None]
